FAERS Safety Report 7110378-6 (Version None)
Quarter: 2010Q4

REPORT INFORMATION
  Report Type: 
  Country: None (occurrence: None)
  Receive Date: 20101118
  Receipt Date: 20101015
  Transmission Date: 20110411
  Serious: Yes (Hospitalization, Other)
  Sender: FDA-Public Use
  Company Number: FR-AMGEN-FRASP2010000514

PATIENT

DRUGS (8)
  1. ENBREL [Suspect]
     Indication: PSORIATIC ARTHROPATHY
     Dosage: 50 MG, QWK
     Route: 058
     Dates: start: 20081128, end: 20090101
  2. ENBREL [Suspect]
     Indication: ANKYLOSING SPONDYLITIS
     Route: 058
     Dates: start: 20090401, end: 20090101
  3. ENBREL [Suspect]
     Dosage: 25 MG, 2 TIMES/WK
     Route: 058
     Dates: start: 20090101
  4. ARAVA [Suspect]
     Dosage: UNKNOWN
     Route: 048
     Dates: start: 20080801, end: 20090310
  5. ARAVA [Suspect]
     Dosage: UNKNOWN
     Route: 048
     Dates: start: 20090101, end: 20090526
  6. DAFALGAN [Concomitant]
     Dosage: 3 G TOTAL DAILY
     Route: 048
     Dates: start: 20070701
  7. TOPALGIC [Concomitant]
     Dosage: 300 MG TOTAL DAILY
     Route: 048
     Dates: start: 20080110
  8. PREVISCAN [Concomitant]
     Dosage: 35 MG TOTAL DAILY
     Route: 048
     Dates: start: 20060301

REACTIONS (9)
  - ABDOMINAL PAIN [None]
  - DEPRESSION [None]
  - DIARRHOEA [None]
  - DRUG EFFECT DECREASED [None]
  - HEADACHE [None]
  - HYPERHIDROSIS [None]
  - NUCLEAR MAGNETIC RESONANCE IMAGING BRAIN ABNORMAL [None]
  - TRACHEITIS [None]
  - WEIGHT DECREASED [None]
